FAERS Safety Report 7552308-9 (Version None)
Quarter: 2011Q2

REPORT INFORMATION
  Report Type: 
  Country: None (occurrence: None)
  Receive Date: 20110616
  Receipt Date: 20050513
  Transmission Date: 20111010
  Serious: Yes (Death, Hospitalization)
  Sender: FDA-Public Use
  Company Number: PHHO2005JP03166

PATIENT
  Sex: Male
  Weight: 56 kg

DRUGS (4)
  1. DIOVAN [Suspect]
     Dosage: 80 MG, QD
     Route: 048
     Dates: start: 20031002, end: 20031130
  2. URALYT-U [Suspect]
     Indication: HYPERURICAEMIA
     Dosage: 3 G, QD
     Route: 048
     Dates: start: 20031002, end: 20031130
  3. MARZULENE S [Suspect]
     Indication: GASTRITIS
     Dosage: 1.5 G, QD
     Route: 048
     Dates: start: 20031002, end: 20031130
  4. SIGMART [Suspect]
     Indication: ANGINA PECTORIS
     Dosage: 15 MG, QD
     Route: 048
     Dates: start: 20031002, end: 20031130

REACTIONS (2)
  - CEREBELLAR INFARCTION [None]
  - PNEUMONIA [None]
